FAERS Safety Report 4568223-9 (Version None)
Quarter: 2005Q1

REPORT INFORMATION
  Report Type: 
  Country: None (occurrence: None)
  Receive Date: 20050131
  Receipt Date: 20050113
  Transmission Date: 20050727
  Serious: Yes (Hospitalization)
  Sender: FDA-Public Use
  Company Number: TRP_0045_2004

PATIENT
  Age: 47 Year
  Sex: Female
  Weight: 82.1011 kg

DRUGS (12)
  1. RIBASPHERE [Suspect]
     Indication: HEPATITIS C
     Dosage: 1000 MG QDAY PO
     Route: 048
     Dates: start: 20041112
  2. PEG-INTRON [Suspect]
     Indication: HEPATITIS C
     Dosage: 120 MCG QWK SC
     Route: 058
     Dates: start: 20041112
  3. AMBIEN [Concomitant]
  4. GLUCOPHAGE [Concomitant]
  5. IRON [Concomitant]
  6. LASIX [Concomitant]
  7. MILK THISTLE FRUIT CAPSULES [Concomitant]
  8. MULTI-VITAMINS [Concomitant]
  9. SYNTHROID [Concomitant]
  10. TYLENOL [Concomitant]
  11. VITAMIN E [Concomitant]
  12. ZOLOFT [Concomitant]

REACTIONS (4)
  - BRONCHOSCOPY ABNORMAL [None]
  - CROHN'S DISEASE [None]
  - HAEMOPTYSIS [None]
  - THROMBOSIS [None]
